FAERS Safety Report 9140257 (Version 1)
Quarter: 2013Q1

REPORT INFORMATION
  Report Type: Spontaneous
  Country: US (occurrence: US)
  Receive Date: 20130305
  Receipt Date: 20130305
  Transmission Date: 20140127
  Serious: Yes (Hospitalization)
  Sender: FDA-Public Use
  Company Number: US-PFIZER INC-2013072070

PATIENT
  Age: 78 Year
  Sex: Female
  Weight: 74 kg

DRUGS (14)
  1. OXALIPLATIN [Suspect]
     Indication: COLON CANCER STAGE II
     Dosage: 85 MG/M2, CYCLIC, DAY 1,
  2. FLUOROURACIL [Suspect]
     Indication: COLON CANCER STAGE II
     Dosage: 400 MG/M2, CYCLIC DAY 1
  3. FLUOROURACIL [Suspect]
     Dosage: 2400 MG/M2, CYCLIC CONTINUOUS INFUSION OF 5-FLUOUROURACIL OVER DAYS 1 AND 2 [46 HOURS] REPEATED EVER
  4. LEUCOVORIN [Suspect]
     Dosage: 400 MG/M2, CYCLIC, DAY 1
  5. SERTRALINE [Concomitant]
     Dosage: 50 MG DAILY
     Route: 048
  6. LISINOPRIL [Concomitant]
     Dosage: 40 MG DAILY
     Route: 048
  7. ATENOLOL [Concomitant]
     Dosage: 50 MG DAILY
     Route: 048
  8. FOLIC ACID [Concomitant]
     Dosage: 0.4 MG DAILY
     Route: 048
  9. SIMVASTATIN [Concomitant]
     Dosage: 20 MG,DAILY
     Route: 048
  10. WARFARIN [Concomitant]
     Dosage: 1 MG, DAILY
     Route: 048
  11. MEGESTROL ACETATE [Concomitant]
     Dosage: 800 MG,DAILY
  12. FERROUS FUMARATE [Concomitant]
     Dosage: 324 MG, DAILY
     Route: 048
  13. ONDANSETRON [Concomitant]
     Indication: NAUSEA
     Dosage: AS NEEDED
  14. ONDANSETRON [Concomitant]
     Indication: VOMITING

REACTIONS (4)
  - Organising pneumonia [Recovered/Resolved]
  - Neutropenia [Recovered/Resolved]
  - Thrombocytopenia [Unknown]
  - Anaemia [Unknown]
